FAERS Safety Report 23643677 (Version 1)
Quarter: 2024Q1

REPORT INFORMATION
  Report Type: Spontaneous
  Country: IT (occurrence: IT)
  Receive Date: 20240318
  Receipt Date: 20240318
  Transmission Date: 20240410
  Serious: Yes (Hospitalization)
  Sender: FDA-Public Use
  Company Number: None

PATIENT
  Age: 71 Year
  Sex: Male
  Weight: 75 kg

DRUGS (3)
  1. SYNJARDY [Suspect]
     Active Substance: EMPAGLIFLOZIN\METFORMIN HYDROCHLORIDE
     Indication: Diabetes mellitus
     Dosage: SYNJARDY 5/1000 MG 1 CP (AS REPORTED) IN THE MORNING E 1 CP (AS REPORTED) IN THE EVENING?1 POSOLOGIC
     Route: 048
  2. TOUJEO [Concomitant]
     Active Substance: INSULIN GLARGINE
     Indication: Diabetes mellitus
     Route: 058
  3. RAMIPRIL [Concomitant]
     Active Substance: RAMIPRIL
     Indication: Hypertension

REACTIONS (1)
  - Bladder neoplasm [Not Recovered/Not Resolved]

NARRATIVE: CASE EVENT DATE: 20221001
